FAERS Safety Report 6838857-7 (Version None)
Quarter: 2010Q3

REPORT INFORMATION
  Report Type: 
  Country: None (occurrence: None)
  Receive Date: 20100713
  Receipt Date: 20070807
  Transmission Date: 20110219
  Serious: No
  Sender: FDA-Public Use
  Company Number: US-PFIZER INC-2007047502

PATIENT
  Sex: Female
  Weight: 86.363 kg

DRUGS (5)
  1. CHANTIX [Suspect]
     Indication: SMOKING CESSATION THERAPY
     Route: 048
     Dates: start: 20070524
  2. BENICAR [Concomitant]
     Indication: HYPERTENSION
  3. PREVACID [Concomitant]
     Indication: GASTRIC DISORDER
  4. LEVOTHYROXINE SODIUM [Concomitant]
     Indication: THYROID DISORDER
  5. SIMVASTATIN [Concomitant]
     Indication: BLOOD CHOLESTEROL ABNORMAL

REACTIONS (9)
  - ABDOMINAL DISCOMFORT [None]
  - DRUG INEFFECTIVE [None]
  - FATIGUE [None]
  - FEELING COLD [None]
  - MALAISE [None]
  - MYALGIA [None]
  - PAIN [None]
  - PYREXIA [None]
  - VOMITING [None]
